FAERS Safety Report 18050590 (Version 1)
Quarter: 2020Q3

REPORT INFORMATION
  Report Type: Spontaneous
  Country: IT (occurrence: IT)
  Receive Date: 20200721
  Receipt Date: 20200721
  Transmission Date: 20201103
  Serious: Yes (Hospitalization)
  Sender: FDA-Public Use
  Company Number: IT-TEVA-2020-IT-1802324

PATIENT
  Age: 55 Year
  Sex: Male
  Weight: 75 kg

DRUGS (5)
  1. GEMCITABINE. [Suspect]
     Active Substance: GEMCITABINE
     Indication: PANCREATIC CARCINOMA
     Dosage: 1000 MG
     Route: 042
     Dates: start: 20200622, end: 20200622
  2. OMEPRAZOLE. [Concomitant]
     Active Substance: OMEPRAZOLE
     Dosage: 40 MG
     Route: 042
     Dates: start: 20200622, end: 20200622
  3. ZOFRAN 8 MG/4 ML SOLUZIONE INIETTABILE [Concomitant]
     Dosage: UNITDOSE: 8 MG
     Route: 042
     Dates: start: 20200622, end: 20200622
  4. MEGACORT [Concomitant]
     Dosage: 8 MG
     Route: 042
     Dates: start: 20200622, end: 20200622
  5. TRIMETON [Concomitant]
     Active Substance: CHLORPHENIRAMINE MALEATE
     Route: 042
     Dates: start: 20200622, end: 20200622

REACTIONS (1)
  - Hypertransaminasaemia [Unknown]

NARRATIVE: CASE EVENT DATE: 20200623
